FAERS Safety Report 16825496 (Version 1)
Quarter: 2019Q3

REPORT INFORMATION
  Report Type: Spontaneous
  Country: CA (occurrence: CA)
  Receive Date: 20190919
  Receipt Date: 20190919
  Transmission Date: 20191005
  Serious: Yes (Other)
  Sender: FDA-Public Use
  Company Number: CA-TEVA-2019-CA-1109470

PATIENT
  Age: 28 Year
  Sex: Female

DRUGS (7)
  1. ACYCLOVIR. [Suspect]
     Active Substance: ACYCLOVIR
     Indication: PREMEDICATION
     Dosage: 400 MILLIGRAM DAILY;
     Route: 048
  2. ALEMTUZUMAB [Suspect]
     Active Substance: ALEMTUZUMAB
     Indication: RELAPSING-REMITTING MULTIPLE SCLEROSIS
     Dosage: 12 MILLIGRAM DAILY;
     Route: 042
  3. GRAVOL [Concomitant]
     Active Substance: DIMENHYDRINATE
     Route: 065
  4. METHYLPREDNISOLONE. [Concomitant]
     Active Substance: METHYLPREDNISOLONE
     Route: 065
  5. RANITIDINE HYDROCHLORIDE. [Concomitant]
     Active Substance: RANITIDINE HYDROCHLORIDE
     Route: 065
  6. MEDROXYPROGESTERONE ACETATE. [Suspect]
     Active Substance: MEDROXYPROGESTERONE ACETATE
     Indication: CONTRACEPTION
     Route: 065
  7. TYLENOL [Concomitant]
     Active Substance: ACETAMINOPHEN
     Route: 065

REACTIONS (49)
  - Balance disorder [Unknown]
  - Nitrite urine present [Unknown]
  - Body temperature increased [Unknown]
  - Feeling cold [Unknown]
  - Increased appetite [Unknown]
  - Monocyte count decreased [Unknown]
  - Sneezing [Unknown]
  - Urine abnormality [Unknown]
  - Haemoglobin decreased [Unknown]
  - Headache [Unknown]
  - Infusion site pain [Unknown]
  - Insomnia [Unknown]
  - Leukopenia [Unknown]
  - Pollakiuria [Unknown]
  - Urinary sediment present [Unknown]
  - Urine analysis abnormal [Unknown]
  - White blood cells urine positive [Unknown]
  - Crystalluria [Unknown]
  - Ear pruritus [Unknown]
  - Multiple sclerosis relapse [Unknown]
  - Neutropenia [Unknown]
  - Rash pruritic [Unknown]
  - Urine leukocyte esterase [Unknown]
  - Bacterial test [Unknown]
  - Burns second degree [Unknown]
  - Erythema [Unknown]
  - Infusion site erythema [Unknown]
  - Lymphocyte count decreased [Unknown]
  - Menstruation irregular [Unknown]
  - Neutrophil count decreased [Unknown]
  - Protein urine present [Unknown]
  - Urticaria [Unknown]
  - White blood cell count decreased [Unknown]
  - Arthralgia [Unknown]
  - Back pain [Unknown]
  - Blood urine present [Unknown]
  - Haematocrit decreased [Unknown]
  - Pain [Unknown]
  - Pruritus [Unknown]
  - Rash [Unknown]
  - Red blood cell count decreased [Unknown]
  - Throat irritation [Unknown]
  - Tremor [Unknown]
  - Fatigue [Unknown]
  - Red cell distribution width increased [Unknown]
  - Urine ketone body present [Unknown]
  - Chills [Unknown]
  - Nasopharyngitis [Unknown]
  - Red blood cells urine positive [Unknown]
